FAERS Safety Report 15919743 (Version 1)
Quarter: 2019Q1

REPORT INFORMATION
  Report Type: Spontaneous
  Country: US (occurrence: US)
  Receive Date: 20190205
  Receipt Date: 20190205
  Transmission Date: 20190417
  Serious: No
  Sender: FDA-Public Use
  Company Number: US-ROCHE-2124598

PATIENT
  Sex: Female

DRUGS (1)
  1. XOLAIR [Suspect]
     Active Substance: OMALIZUMAB
     Indication: IDIOPATHIC URTICARIA
     Route: 058
     Dates: start: 20180426

REACTIONS (5)
  - Dysphagia [Unknown]
  - Ill-defined disorder [Unknown]
  - Throat tightness [Unknown]
  - Flushing [Unknown]
  - Urticaria [Unknown]
